FAERS Safety Report 9214939 (Version 1)
Quarter: 2013Q2

REPORT INFORMATION
  Report Type: Report from Study
  Country: US (occurrence: US)
  Receive Date: 20130405
  Receipt Date: 20130405
  Transmission Date: 20140414
  Serious: Yes (Other)
  Sender: FDA-Public Use
  Company Number: US-AMGEN-USACT2011037695

PATIENT
  Age: 72 Year
  Sex: Male

DRUGS (5)
  1. DENOSUMAB [Suspect]
     Indication: METASTASES TO BONE
     Dates: start: 20080319, end: 20110316
  2. LUPRON [Concomitant]
     Indication: PROSTATE CANCER
     Dosage: UNK
     Dates: start: 1999
  3. CORTISONE [Concomitant]
  4. WARFARIN [Concomitant]
  5. ANTIBIOTICS [Concomitant]
     Dosage: UNK
     Dates: start: 201104

REACTIONS (1)
  - Osteonecrosis of jaw [Recovering/Resolving]
